FAERS Safety Report 9207733 (Version 1)
Quarter: 2013Q2

REPORT INFORMATION
  Report Type: Spontaneous
  Country: IT (occurrence: IT)
  Receive Date: 20130403
  Receipt Date: 20130403
  Transmission Date: 20140414
  Serious: Yes (Hospitalization)
  Sender: FDA-Public Use
  Company Number: IT-BRISTOL-MYERS SQUIBB COMPANY-18724450

PATIENT
  Age: 86 Year
  Sex: Female

DRUGS (7)
  1. METFORMIN HCL TABS [Suspect]
     Indication: DIABETES MELLITUS
     Dosage: METFORMIN HCL TABS 850MG
     Route: 048
     Dates: start: 20120101, end: 20130301
  2. DILATREND [Concomitant]
     Dosage: TABS?TOTAL 28TABS
  3. LASIX [Concomitant]
     Dosage: TABS
  4. APROVEL [Concomitant]
     Dosage: 1DF:150MG TOTAL OF 28TABS
  5. TORVAST [Concomitant]
     Dosage: TABS?1DF:20MG TOTAL OF 30TABS
  6. CATAPRESAN [Concomitant]
     Dosage: PATCH
     Route: 062
  7. CARDIRENE [Concomitant]
     Route: 048

REACTIONS (1)
  - Renal failure acute [Recovered/Resolved]
